FAERS Safety Report 20225529 (Version 5)
Quarter: 2022Q2

REPORT INFORMATION
  Report Type: Spontaneous
  Country: BR (occurrence: BR)
  Receive Date: 20211224
  Receipt Date: 20220630
  Transmission Date: 20220720
  Serious: Yes (Other)
  Sender: FDA-Public Use
  Company Number: BR-009507513-2112BRA005576

PATIENT
  Age: 43 Year
  Sex: Male
  Weight: 82 kg

DRUGS (9)
  1. JANUMET [Suspect]
     Active Substance: METFORMIN HYDROCHLORIDE\SITAGLIPTIN PHOSPHATE
     Indication: Type 2 diabetes mellitus
     Dosage: 50/850 MG TABLETS
     Route: 048
     Dates: start: 20211105, end: 20211107
  2. JANUMET [Suspect]
     Active Substance: METFORMIN HYDROCHLORIDE\SITAGLIPTIN PHOSPHATE
     Dosage: 1 TABLET (50/1000 MG) TWICE DAILY
     Route: 048
     Dates: start: 20211108, end: 20220113
  3. JANUMET [Suspect]
     Active Substance: METFORMIN HYDROCHLORIDE\SITAGLIPTIN PHOSPHATE
     Dosage: 3 TABLETS (50/1000 MG) A DAY, AFTER MEALS
     Route: 048
     Dates: start: 20220114
  4. BENFOTIAMINE [Suspect]
     Active Substance: BENFOTIAMINE
     Indication: Neuropathy peripheral
     Dosage: 150 MILLIGRAM
     Route: 048
     Dates: start: 20211108
  5. ATORVASTATIN [Concomitant]
     Active Substance: ATORVASTATIN
     Indication: Blood cholesterol
     Dosage: 20 MILLIGRAM
     Route: 048
     Dates: start: 2012
  6. ZOLPIDEM [Concomitant]
     Active Substance: ZOLPIDEM TARTRATE
     Indication: Insomnia
     Dosage: 5 MILLIGRAM
     Route: 048
     Dates: start: 20211105
  7. GLICLAZIDE [Concomitant]
     Active Substance: GLICLAZIDE
     Indication: Diabetes mellitus
     Dosage: 3 TABLETS PER DAY
     Route: 048
  8. GLICLAZIDE [Concomitant]
     Active Substance: GLICLAZIDE
     Indication: Diabetes mellitus
     Dosage: 1 TABLET (60 MG), 3 TIMES A DAY
  9. GLICLAZIDE [Concomitant]
     Active Substance: GLICLAZIDE
     Dosage: 0.5 TABLET/0.5 TABLET/1 TABLET, DAILY

REACTIONS (27)
  - Diabetes mellitus inadequate control [Unknown]
  - Cerebrovascular accident [Unknown]
  - Appetite disorder [Unknown]
  - Blood glucose decreased [Unknown]
  - Incorrect dosage administered [Unknown]
  - Headache [Unknown]
  - Head discomfort [Unknown]
  - Speech disorder [Not Recovered/Not Resolved]
  - Hypoacusis [Not Recovered/Not Resolved]
  - Cerebral disorder [Unknown]
  - Feeling abnormal [Unknown]
  - Throat tightness [Unknown]
  - Suspected COVID-19 [Unknown]
  - Stress [Unknown]
  - Memory impairment [Not Recovered/Not Resolved]
  - Visual impairment [Not Recovered/Not Resolved]
  - Visual impairment [Not Recovered/Not Resolved]
  - Depression [Unknown]
  - Abdominal pain upper [Unknown]
  - Pancreatic disorder [Unknown]
  - Drug hypersensitivity [Unknown]
  - Drug ineffective [Unknown]
  - Feeling hot [Unknown]
  - Visual impairment [Unknown]
  - Headache [Unknown]
  - Prescribed overdose [Unknown]
  - Product prescribing issue [Unknown]

NARRATIVE: CASE EVENT DATE: 20211105
